FAERS Safety Report 5824991-7 (Version None)
Quarter: 2008Q3

REPORT INFORMATION
  Report Type: 
  Country: None (occurrence: None)
  Receive Date: 20080728
  Receipt Date: 20080716
  Transmission Date: 20090109
  Serious: Yes (Hospitalization)
  Sender: FDA-Public Use
  Company Number: FR-PFIZER INC-2008060266

PATIENT
  Sex: Male

DRUGS (6)
  1. LYRICA [Suspect]
     Indication: NEUROPATHY PERIPHERAL
     Route: 048
     Dates: start: 20080415, end: 20080606
  2. PANTOPRAZOLE SODIUM [Concomitant]
     Dosage: DAILY DOSE:40MG
     Route: 048
  3. EXELON [Concomitant]
  4. MEDROL [Concomitant]
  5. DRUG, UNSPECIFIED [Concomitant]
  6. LEXOMIL [Concomitant]

REACTIONS (2)
  - GENERALISED OEDEMA [None]
  - OEDEMA PERIPHERAL [None]
